FAERS Safety Report 8511327-6 (Version None)
Quarter: 2012Q3

REPORT INFORMATION
  Report Type: 
  Country: None (occurrence: None)
  Receive Date: 20120716
  Receipt Date: 20120711
  Transmission Date: 20120928
  Serious: Yes (Life-Threatening, Hospitalization, Other)
  Sender: FDA-Public Use
  Company Number: US-SANOFI-AVENTIS-2012SA049655

PATIENT
  Age: 64 Year
  Sex: Female

DRUGS (2)
  1. OPTICLICK [Suspect]
     Dates: start: 20090101, end: 20120710
  2. LANTUS [Suspect]
     Dosage: DOSE:32 UNIT(S)
     Route: 058
     Dates: start: 20020101

REACTIONS (7)
  - COMA [None]
  - TREMOR [None]
  - PERSONALITY CHANGE [None]
  - EYE DISORDER [None]
  - CEREBROVASCULAR ACCIDENT [None]
  - SINUS DISORDER [None]
  - MENINGITIS BACTERIAL [None]
